FAERS Safety Report 17304741 (Version 1)
Quarter: 2020Q1

REPORT INFORMATION
  Report Type: Spontaneous
  Country: JP (occurrence: JP)
  Receive Date: 20200122
  Receipt Date: 20200122
  Transmission Date: 20200409
  Serious: Yes (Hospitalization, Other)
  Sender: FDA-Public Use
  Company Number: JP-TEVA-2020-JP-1173928

PATIENT
  Age: 7 Decade
  Sex: Female

DRUGS (3)
  1. BENDAMUSTINE HYDROCHLORIDE. [Suspect]
     Active Substance: BENDAMUSTINE HYDROCHLORIDE
     Dosage: 90 MG/M2X 1/DAY, CYCLIC (SIXTH CYCLE)
     Route: 042
     Dates: start: 20190923, end: 20190924
  2. OBINUTUZUMAB. [Suspect]
     Active Substance: OBINUTUZUMAB
     Indication: B-CELL LYMPHOMA
     Route: 041
  3. BENDAMUSTINE HYDROCHLORIDE. [Suspect]
     Active Substance: BENDAMUSTINE HYDROCHLORIDE
     Indication: B-CELL LYMPHOMA
     Dosage: 90 MG/M2X 1/DAY, CYCLIC (FIRST CYCLE)
     Route: 042
     Dates: start: 20190412, end: 20190413

REACTIONS (2)
  - Cellulitis [Unknown]
  - Cystitis [Recovering/Resolving]

NARRATIVE: CASE EVENT DATE: 20190925
